FAERS Safety Report 9394917 (Version 6)
Quarter: 2013Q3

REPORT INFORMATION
  Report Type: Spontaneous
  Country: GB (occurrence: None)
  Receive Date: 20130705
  Receipt Date: 20130815
  Transmission Date: 20140515
  Serious: Yes (Other)
  Sender: FDA-Public Use
  Company Number: AUR-APL-2013-05536

PATIENT
  Age: 63 Year
  Sex: Male

DRUGS (3)
  1. CLOPIDOGREL [Suspect]
     Indication: PRODUCT USED FOR UNKNOWN INDICATION
     Dosage: STOPPED
  2. XARELTO [Suspect]
     Indication: CEREBROVASCULAR ACCIDENT PROPHYLAXIS
     Dates: start: 20130528, end: 20130625
  3. XARELTO [Suspect]
     Indication: ATRIAL FIBRILLATION
     Dates: start: 20130528, end: 20130625

REACTIONS (3)
  - Haemorrhage [None]
  - Drug interaction [None]
  - Rectal haemorrhage [None]
